FAERS Safety Report 22186953 (Version 1)
Quarter: 2023Q2

REPORT INFORMATION
  Report Type: Spontaneous
  Country: IL (occurrence: None)
  Receive Date: 20230407
  Receipt Date: 20230407
  Transmission Date: 20230721
  Serious: Yes (Death, Other)
  Sender: FDA-Public Use
  Company Number: 2023A078649

PATIENT
  Age: 75 Year
  Sex: Female

DRUGS (5)
  1. OSIMERTINIB [Suspect]
     Active Substance: OSIMERTINIB
     Indication: Non-small cell lung cancer stage IIIB
     Route: 048
     Dates: start: 201911, end: 202106
  2. OSIMERTINIB [Suspect]
     Active Substance: OSIMERTINIB
     Indication: Non-small cell lung cancer stage IIIB
     Route: 048
     Dates: start: 202108
  3. PEMETREXED/CARBOPLATIN [Concomitant]
     Indication: Non-small cell lung cancer stage IIIB
  4. TRAMETINIB [Concomitant]
     Active Substance: TRAMETINIB
  5. DABRAFENIB [Concomitant]
     Active Substance: DABRAFENIB

REACTIONS (3)
  - Malignant neoplasm progression [Fatal]
  - Acquired gene mutation [Unknown]
  - Drug resistance [Unknown]

NARRATIVE: CASE EVENT DATE: 20210201
